FAERS Safety Report 19865225 (Version 1)
Quarter: 2021Q3

REPORT INFORMATION
  Report Type: Spontaneous
  Country: US (occurrence: US)
  Receive Date: 20210922
  Receipt Date: 20210922
  Transmission Date: 20211014
  Serious: Yes (Other)
  Sender: FDA-Public Use
  Company Number: US-BRISTOL-MYERS SQUIBB COMPANY-BMS-2021-092848

PATIENT
  Age: 53 Year
  Sex: Male

DRUGS (2)
  1. IPILIMUMAB [Suspect]
     Active Substance: IPILIMUMAB
     Indication: FOLLICULAR THYROID CANCER
     Dosage: 1 MILLIGRAM/KILOGRAM
     Route: 065
     Dates: start: 20200727
  2. NIVOLUMAB [Suspect]
     Active Substance: NIVOLUMAB
     Indication: FOLLICULAR THYROID CANCER
     Dosage: 3 MILLIGRAM/KILOGRAM
     Route: 065
     Dates: start: 20200727

REACTIONS (2)
  - Malignant neoplasm progression [Unknown]
  - Intentional product use issue [Unknown]
